FAERS Safety Report 22111194 (Version 1)
Quarter: 2023Q1

REPORT INFORMATION
  Report Type: Spontaneous
  Country: US (occurrence: US)
  Receive Date: 20230317
  Receipt Date: 20230317
  Transmission Date: 20230417
  Serious: No
  Sender: FDA-Public Use
  Company Number: US-PFIZER INC-202300116517

PATIENT
  Sex: Male

DRUGS (2)
  1. RAPAMUNE [Suspect]
     Active Substance: SIROLIMUS
     Indication: Immune thrombocytopenia
     Dosage: UNK, ALTERNATE DAY (EVERY OTHER DAY)
  2. RAPAMUNE [Suspect]
     Active Substance: SIROLIMUS
     Dosage: UNK, DAILY

REACTIONS (4)
  - Platelet count decreased [Unknown]
  - Off label use [Unknown]
  - Off label use [Unknown]
  - Therapeutic product effect decreased [Unknown]
